FAERS Safety Report 7780360-4 (Version None)
Quarter: 2011Q3

REPORT INFORMATION
  Report Type: 
  Country: None (occurrence: None)
  Receive Date: 20110927
  Receipt Date: 20110915
  Transmission Date: 20111222
  Serious: Yes (Death, Life-Threatening, Hospitalization, Disabling, Other)
  Sender: FDA-Public Use
  Company Number: RU-SANOFI-AVENTIS-2011SA043821

PATIENT
  Age: 72 Year
  Sex: Male
  Weight: 88 kg

DRUGS (10)
  1. PERINDOPRIL ERBUMINE [Concomitant]
  2. LASIX [Concomitant]
  3. DIGOXIN [Concomitant]
  4. THIAZIDES [Concomitant]
  5. ASPIRIN [Concomitant]
  6. ENALAPRIL [Concomitant]
  7. ALL OTHER THERAPEUTIC PRODUCTS [Concomitant]
  8. LEVOTHYROXINE SODIUM [Concomitant]
  9. DRONEDARONE HCL [Suspect]
     Indication: ATRIAL FIBRILLATION
     Route: 048
     Dates: start: 20101222, end: 20110113
  10. METOPROLOL TARTRATE [Concomitant]

REACTIONS (13)
  - COMPRESSION FRACTURE [None]
  - MULTI-ORGAN FAILURE [None]
  - MYOCARDIAL INFARCTION [None]
  - FALL [None]
  - MULTIPLE FRACTURES [None]
  - RENAL FAILURE ACUTE [None]
  - ISCHAEMIC STROKE [None]
  - CARDIAC DEATH [None]
  - MICTURITION DISORDER [None]
  - SEPSIS [None]
  - HEPATIC FAILURE [None]
  - PELVIC HAEMATOMA [None]
  - SUBDURAL HYGROMA [None]
